FAERS Safety Report 8962622 (Version 1)
Quarter: 2012Q4

REPORT INFORMATION
  Report Type: Spontaneous
  Country: US (occurrence: None)
  Receive Date: 20121211
  Receipt Date: 20121211
  Transmission Date: 20130627
  Serious: Yes (Hospitalization)
  Sender: FDA-Public Use
  Company Number: None

PATIENT
  Age: 56 Year
  Sex: Male

DRUGS (8)
  1. REVLIMID [Suspect]
     Dosage: 2.5 daily x21d/28d orally
probably 1 month
  2. AMOXICILLIN/CLAVULANATE POTASSIUM [Concomitant]
  3. DEXAMETHASONE [Concomitant]
  4. PSEUDOEPHEDRINE [Concomitant]
  5. ALBUTEROL [Concomitant]
  6. ACYCLOVIR [Concomitant]
  7. HYDROCODONE/APAP [Concomitant]
  8. LYRICA [Concomitant]

REACTIONS (4)
  - Thrombocytopenia [None]
  - Anaemia [None]
  - Gastrointestinal haemorrhage [None]
  - Coagulopathy [None]
